FAERS Safety Report 11934539 (Version 1)
Quarter: 2016Q1

REPORT INFORMATION
  Report Type: Spontaneous
  Country: CA (occurrence: CA)
  Receive Date: 20160121
  Receipt Date: 20160121
  Transmission Date: 20160526
  Serious: Yes (Hospitalization)
  Sender: FDA-Public Use
  Company Number: CA-TEVA-627219ACC

PATIENT
  Age: 92 Year
  Sex: Female

DRUGS (9)
  1. BACLOFEN. [Suspect]
     Active Substance: BACLOFEN
     Indication: MUSCLE SPASMS
     Dosage: 20 MILLIGRAM DAILY;
     Route: 048
  2. ALLOPURINOL. [Concomitant]
     Active Substance: ALLOPURINOL
  3. CO RANITIDINE [Concomitant]
  4. DIAMICRON [Concomitant]
     Active Substance: GLICLAZIDE
  5. BETAHISTINE [Concomitant]
     Active Substance: BETAHISTINE
  6. LORAZEPAM. [Concomitant]
     Active Substance: LORAZEPAM
  7. AMLODIPINE [Concomitant]
     Active Substance: AMLODIPINE BESYLATE
  8. ROCALTROL [Concomitant]
     Active Substance: CALCITRIOL
  9. SYNTHROID [Concomitant]
     Active Substance: LEVOTHYROXINE SODIUM

REACTIONS (7)
  - Fall [Unknown]
  - Vomiting [Unknown]
  - Dysarthria [Unknown]
  - Nausea [Unknown]
  - Anal incontinence [Unknown]
  - Dyskinesia [Unknown]
  - Lip swelling [Unknown]
